FAERS Safety Report 6888364-0 (Version None)
Quarter: 2010Q3

REPORT INFORMATION
  Report Type: 
  Country: None (occurrence: None)
  Receive Date: 20100730
  Receipt Date: 20100720
  Transmission Date: 20110219
  Serious: Yes (Death)
  Sender: FDA-Public Use
  Company Number: NG-PFIZER INC-2010093257

PATIENT
  Sex: Male

DRUGS (1)
  1. CADUET [Suspect]
     Dosage: UNK

REACTIONS (1)
  - HAEMORRHAGE [None]
